FAERS Safety Report 4396308-9 (Version None)
Quarter: 2004Q3

REPORT INFORMATION
  Report Type: 
  Country: None (occurrence: None)
  Receive Date: 20040713
  Receipt Date: 20031217
  Transmission Date: 20050211
  Serious: Yes (Life-Threatening)
  Sender: FDA-Public Use
  Company Number: FR-GLAXOSMITHKLINE-B0318056A

PATIENT
  Age: 53 Year
  Sex: Female
  Weight: 97 kg

DRUGS (8)
  1. TRACRIUM [Suspect]
     Indication: GENERAL ANAESTHESIA
     Dosage: 30MG PER DAY
     Route: 042
     Dates: start: 20030911
  2. HYPNOVEL [Suspect]
     Route: 042
     Dates: start: 20030911
  3. SUFENTA [Suspect]
     Dosage: 15MCG PER DAY
     Route: 042
     Dates: start: 20030911
  4. PERFALGAN [Suspect]
     Dosage: 1G PER DAY
     Route: 042
     Dates: start: 20030911
  5. PROPOFOL [Suspect]
     Dosage: 120MG PER DAY
     Route: 042
     Dates: start: 20030911
  6. CEFAZOLIN [Suspect]
     Dosage: 2G PER DAY
     Route: 042
     Dates: start: 20030911
  7. LEVOTHYROXINE SODIUM [Concomitant]
  8. VEINAMITOL [Concomitant]

REACTIONS (6)
  - ANAESTHETIC COMPLICATION [None]
  - BLOOD PRESSURE DECREASED [None]
  - BRADYCARDIA [None]
  - CARDIOGENIC SHOCK [None]
  - SHOCK [None]
  - VENTRICULAR FIBRILLATION [None]
